FAERS Safety Report 5159281-1 (Version None)
Quarter: 2006Q4

REPORT INFORMATION
  Report Type: 
  Country: None (occurrence: None)
  Receive Date: 20061116
  Receipt Date: 20061108
  Transmission Date: 20070319
  Serious: Yes (Death, Hospitalization)
  Sender: FDA-Public Use
  Company Number: THYM-10755

PATIENT
  Age: 61 Year
  Sex: Female
  Weight: 40 kg

DRUGS (8)
  1. THYMOGLOBULIN [Suspect]
     Indication: RENAL TRANSPLANT
     Dosage: 2.5 MG/KG QD IV
     Route: 042
     Dates: start: 20050401, end: 20050401
  2. THYMOGLOBULIN [Suspect]
     Indication: RENAL TRANSPLANT
     Dosage: 1.25 MG/KG QD IV
     Route: 042
     Dates: start: 20050402, end: 20050404
  3. CELLCEPT [Suspect]
     Indication: IMMUNOSUPPRESSION
     Dosage: 2 G QD
     Dates: start: 20050401
  4. CYCLOSPORINE [Suspect]
     Indication: IMMUNOSUPPRESSION
     Dosage: 200 MG
     Dates: start: 20050402
  5. METHYLPREDNISOLONE [Suspect]
     Indication: PREMEDICATION
     Dosage: 500 MG ONCE
     Dates: start: 20050401, end: 20050401
  6. PREDNISONE TAB [Suspect]
     Indication: IMMUNOSUPPRESSION
     Dosage: 1 MG/KG QD
     Dates: start: 20050402, end: 20050411
  7. PREDNISONE TAB [Suspect]
     Indication: IMMUNOSUPPRESSION
     Dates: start: 20050412
  8. POLARAMINE [Suspect]
     Indication: PREMEDICATION
     Dosage: 5 MG Q4HR IV
     Route: 042
     Dates: start: 20050401, end: 20050404

REACTIONS (9)
  - ANOREXIA [None]
  - DEHYDRATION [None]
  - DEPRESSION [None]
  - FALL [None]
  - GENERAL PHYSICAL HEALTH DETERIORATION [None]
  - PELVIC FRACTURE [None]
  - RENAL FAILURE [None]
  - SEPSIS [None]
  - VOMITING [None]
